FAERS Safety Report 24554922 (Version 2)
Quarter: 2024Q4

REPORT INFORMATION
  Report Type: Spontaneous
  Country: JP (occurrence: JP)
  Receive Date: 20241028
  Receipt Date: 20241113
  Transmission Date: 20250114
  Serious: Yes (Other)
  Sender: GLAXOSMITHKLINE
  Company Number: JP-GSK-JP2024JPN132526

PATIENT

DRUGS (2)
  1. VALTREX [Suspect]
     Active Substance: VALACYCLOVIR HYDROCHLORIDE
     Indication: Herpes zoster
     Dosage: UNK
     Route: 064
  2. VALTREX [Suspect]
     Active Substance: VALACYCLOVIR HYDROCHLORIDE
     Indication: Genital herpes

REACTIONS (28)
  - Congenital syphilis [Unknown]
  - Foetal growth restriction [Recovered/Resolved]
  - Foetal heart rate deceleration abnormality [Unknown]
  - Oedema neonatal [Unknown]
  - Funisitis [Unknown]
  - Intrauterine infection [Unknown]
  - Pulmonary haemorrhage neonatal [Unknown]
  - Disseminated intravascular coagulation in newborn [Unknown]
  - Neonatal intestinal dilatation [Recovering/Resolving]
  - Neonatal intestinal obstruction [Unknown]
  - Jaundice cholestatic [Recovering/Resolving]
  - Intracranial haemorrhage neonatal [Unknown]
  - Gastric haemorrhage [Unknown]
  - Hyperbilirubinaemia [Unknown]
  - Hepatitis syphilitic [Unknown]
  - Premature baby [Unknown]
  - Low birth weight baby [Recovered/Resolved]
  - Abdominal distension [Unknown]
  - Petechiae [Unknown]
  - Inflammation [Unknown]
  - Respiratory disorder neonatal [Unknown]
  - Malformation venous [Unknown]
  - Cerebrovascular disorder [Unknown]
  - Anaemia neonatal [Unknown]
  - Haemorrhagic diathesis [Unknown]
  - Vascular injury [Unknown]
  - Neonatal gastrointestinal disorder [Unknown]
  - Foetal exposure during pregnancy [Unknown]
